FAERS Safety Report 7617317-X (Version None)
Quarter: 2011Q3

REPORT INFORMATION
  Report Type: 
  Country: None (occurrence: None)
  Receive Date: 20110718
  Receipt Date: 20110712
  Transmission Date: 20111222
  Serious: Yes (Hospitalization)
  Sender: FDA-Public Use
  Company Number: PHHO2011CZ12014

PATIENT
  Sex: Male
  Weight: 82 kg

DRUGS (6)
  1. PRESTARIUM NEO COMBI [Concomitant]
     Indication: HYPERTENSION
     Dosage: 1 DF, DAILY
     Dates: start: 20080101
  2. LOKREN [Concomitant]
     Indication: HYPERTENSION
     Dosage: 1 DF, DAILY
     Dates: start: 20080101
  3. LACTULOSE [Concomitant]
     Indication: CONSTIPATION
     Dosage: AS NEEDED
     Dates: start: 20100702, end: 20100830
  4. TASIGNA [Suspect]
     Dosage: NO TREATMENT RECEIVED
     Dates: start: 20110619, end: 20110620
  5. TASIGNA [Suspect]
     Indication: GASTROINTESTINAL STROMAL TUMOUR
     Dosage: 400 MG, DAILY
     Route: 048
     Dates: start: 20100810, end: 20110618
  6. TASIGNA [Suspect]
     Dosage: 400 MG, DAILY
     Route: 048
     Dates: start: 20110621

REACTIONS (1)
  - ACUTE MYOCARDIAL INFARCTION [None]
